FAERS Safety Report 7544209-7 (Version None)
Quarter: 2011Q2

REPORT INFORMATION
  Report Type: 
  Country: None (occurrence: None)
  Receive Date: 20110613
  Receipt Date: 20061109
  Transmission Date: 20111010
  Serious: Yes (Other)
  Sender: FDA-Public Use
  Company Number: PHMT2006CA00776

PATIENT
  Sex: Female

DRUGS (6)
  1. SANDOSTATIN LAR [Suspect]
     Indication: NELSON'S SYNDROME
     Dosage: 30 MG, ONCE A MONTH
     Dates: start: 20040320
  2. EFFEXOR [Concomitant]
  3. PREDNISONE [Concomitant]
  4. OXYCONTIN [Concomitant]
  5. FLORINEF [Concomitant]
  6. GABAPENTIN [Concomitant]

REACTIONS (5)
  - BLOOD CORTICOTROPHIN INCREASED [None]
  - NEPHROLITHIASIS [None]
  - HEADACHE [None]
  - CYSTITIS [None]
  - AMNESIA [None]
